FAERS Safety Report 8415845-0 (Version None)
Quarter: 2012Q2

REPORT INFORMATION
  Report Type: 
  Country: None (occurrence: None)
  Receive Date: 20120606
  Receipt Date: 20120524
  Transmission Date: 20120825
  Serious: No
  Sender: FDA-Public Use
  Company Number: US-ASTRAZENECA-2012SE34029

PATIENT
  Sex: Female

DRUGS (2)
  1. SYMBICORT [Suspect]
     Dosage: TWO PUFFS TWICE DAY
     Route: 055
  2. SYMBICORT [Suspect]
     Dosage: ONE PUFFS TWICE DAY
     Route: 055

REACTIONS (3)
  - VOMITING [None]
  - INTENTIONAL DRUG MISUSE [None]
  - ADVERSE DRUG REACTION [None]
